FAERS Safety Report 12214520 (Version 8)
Quarter: 2020Q3

REPORT INFORMATION
  Report Type: Spontaneous
  Country: FR (occurrence: FR)
  Receive Date: 20160328
  Receipt Date: 20200727
  Transmission Date: 20201102
  Serious: Yes (Congenital Anomaly, Other)
  Sender: FDA-Public Use
  Company Number: FR-ABBVIE-16P-056-1592095-00

PATIENT
  Age: 8 Month
  Sex: Female
  Weight: 3 kg

DRUGS (3)
  1. TARDYFERON [Concomitant]
     Active Substance: FERROUS SULFATE
     Indication: PRODUCT USED FOR UNKNOWN INDICATION
  2. SPECIAFOLDINE [Concomitant]
     Active Substance: FOLIC ACID
     Indication: PRODUCT USED FOR UNKNOWN INDICATION
  3. DEPAKINE CHRONO [Suspect]
     Active Substance: VALPROATE SODIUM
     Indication: MATERNAL EXPOSURE TIMING UNSPECIFIED
     Route: 064

REACTIONS (19)
  - Dyslexia [Not Recovered/Not Resolved]
  - Dysmorphism [Not Recovered/Not Resolved]
  - Melanocytic naevus [Unknown]
  - Developmental delay [Not Recovered/Not Resolved]
  - Pharyngitis [Unknown]
  - Learning disorder [Not Recovered/Not Resolved]
  - Foetal exposure during pregnancy [Unknown]
  - Cough [Unknown]
  - Ear, nose and throat examination abnormal [Unknown]
  - Foetal anticonvulsant syndrome [Unknown]
  - Attention deficit hyperactivity disorder [Unknown]
  - Memory impairment [Unknown]
  - Dyspraxia [Not Recovered/Not Resolved]
  - Auditory disorder [Unknown]
  - Cognitive disorder [Unknown]
  - Enuresis [Unknown]
  - Disturbance in attention [Not Recovered/Not Resolved]
  - Hypotonia [Unknown]
  - Language disorder [Not Recovered/Not Resolved]

NARRATIVE: CASE EVENT DATE: 200812
